FAERS Safety Report 9501974 (Version 1)
Quarter: 2013Q3

REPORT INFORMATION
  Report Type: Spontaneous
  Country: IT (occurrence: IT)
  Receive Date: 20130905
  Receipt Date: 20130905
  Transmission Date: 20140515
  Serious: Yes (Hospitalization)
  Sender: FDA-Public Use
  Company Number: IT-MYLANLABS-2013S1019303

PATIENT
  Age: 69 Year
  Sex: Female

DRUGS (1)
  1. CLOPIDOGREL [Suspect]
     Indication: MYOCARDIAL ISCHAEMIA
     Route: 048

REACTIONS (3)
  - Abdominal pain [Recovering/Resolving]
  - Dysuria [Recovering/Resolving]
  - Presyncope [Recovering/Resolving]
